FAERS Safety Report 4939309-1 (Version None)
Quarter: 2006Q1

REPORT INFORMATION
  Report Type: 
  Country: None (occurrence: None)
  Receive Date: 20060310
  Receipt Date: 20060227
  Transmission Date: 20060701
  Serious: Yes (Other)
  Sender: FDA-Public Use
  Company Number: PHBS2006US03510

PATIENT
  Age: 61 Year
  Sex: Male

DRUGS (1)
  1. ZOLEDRONIC ACID [Suspect]
     Indication: METASTATIC NEOPLASM
     Route: 042

REACTIONS (2)
  - BONE DEBRIDEMENT [None]
  - OSTEONECROSIS [None]
